FAERS Safety Report 7731125-0 (Version None)
Quarter: 2011Q3

REPORT INFORMATION
  Report Type: 
  Country: None (occurrence: None)
  Receive Date: 20110906
  Receipt Date: 20110906
  Transmission Date: 20111222
  Serious: Yes (Life-Threatening, Hospitalization, Disabling, Other)
  Sender: FDA-Public Use
  Company Number: None

PATIENT
  Age: 24 Year
  Sex: Male

DRUGS (1)
  1. BUPROPRION HCL [Suspect]
     Indication: DEPRESSION
     Dosage: 30MG
     Route: 048
     Dates: start: 20070907, end: 20080118

REACTIONS (17)
  - VISUAL IMPAIRMENT [None]
  - MANIA [None]
  - MOOD SWINGS [None]
  - COMPULSIONS [None]
  - HYPERHIDROSIS [None]
  - PAIN [None]
  - INSOMNIA [None]
  - BRAIN INJURY [None]
  - PAIN IN EXTREMITY [None]
  - HAEMORRHAGE [None]
  - MUSCLE SPASMS [None]
  - EMOTIONAL DISORDER [None]
  - FALL [None]
  - CEREBROVASCULAR ACCIDENT [None]
  - AUTONOMIC NERVOUS SYSTEM IMBALANCE [None]
  - PANIC DISORDER [None]
  - TACHYCARDIA [None]
